FAERS Safety Report 7407301-3 (Version None)
Quarter: 2011Q2

REPORT INFORMATION
  Report Type: 
  Country: None (occurrence: None)
  Receive Date: 20110411
  Receipt Date: 20110328
  Transmission Date: 20111010
  Serious: Yes (Other)
  Sender: FDA-Public Use
  Company Number: PHHY2011FR24530

PATIENT
  Sex: Female

DRUGS (1)
  1. ILARIS [Suspect]
     Indication: MUCKLE-WELLS SYNDROME
     Dosage: 150 MG, EVERY 3 MONTHS
     Route: 058
     Dates: start: 20080101

REACTIONS (7)
  - BREAST CANCER [None]
  - SKIN LESION [None]
  - ARTHRALGIA [None]
  - BRONCHITIS [None]
  - ECZEMA [None]
  - EAR PAIN [None]
  - ASTHENIA [None]
